FAERS Safety Report 8208512-X (Version None)
Quarter: 2012Q1

REPORT INFORMATION
  Report Type: 
  Country: None (occurrence: None)
  Receive Date: 20120314
  Receipt Date: 20120103
  Transmission Date: 20120608
  Serious: Yes (Other)
  Sender: FDA-Public Use
  Company Number: US-ROCHE-1027011

PATIENT
  Sex: Male

DRUGS (1)
  1. ZELBORAF [Suspect]
     Indication: PRODUCT USED FOR UNKNOWN INDICATION

REACTIONS (8)
  - NEOPLASM [None]
  - MELANOCYTIC NAEVUS [None]
  - ARTHRALGIA [None]
  - AMNESIA [None]
  - FATIGUE [None]
  - CONSTIPATION [None]
  - VISUAL IMPAIRMENT [None]
  - DECREASED APPETITE [None]
